FAERS Safety Report 18484979 (Version 1)
Quarter: 2020Q4

REPORT INFORMATION
  Report Type: Spontaneous
  Country: US (occurrence: US)
  Receive Date: 20201109
  Receipt Date: 20201109
  Transmission Date: 20210114
  Serious: Yes (Hospitalization)
  Sender: FDA-Public Use
  Company Number: None

PATIENT
  Age: 74 Year
  Sex: Female

DRUGS (6)
  1. MEIHOTREXATE [Concomitant]
  2. ORENCIA [Suspect]
     Active Substance: ABATACEPT
     Indication: PRODUCT USED FOR UNKNOWN INDICATION
     Route: 058
     Dates: start: 20180203
  3. VITAMIN D [Concomitant]
     Active Substance: VITAMIN D NOS
  4. FOLIC ACID. [Concomitant]
     Active Substance: FOLIC ACID
  5. ALEVE [Concomitant]
     Active Substance: NAPROXEN SODIUM
  6. TRAMA DOL [Concomitant]

REACTIONS (3)
  - Thrombosis [None]
  - Therapy interrupted [None]
  - Hip fracture [None]

NARRATIVE: CASE EVENT DATE: 20201106
